FAERS Safety Report 13155575 (Version 3)
Quarter: 2017Q1

REPORT INFORMATION
  Report Type: Spontaneous
  Country: US (occurrence: US)
  Receive Date: 20170126
  Receipt Date: 20170222
  Transmission Date: 20170428
  Serious: Yes (Hospitalization, Disabling, Other)
  Sender: FDA-Public Use
  Company Number: US-009507513-1701USA011082

PATIENT
  Age: 81 Year
  Sex: Female

DRUGS (1)
  1. KEYTRUDA [Suspect]
     Active Substance: PEMBROLIZUMAB
     Indication: MALIGNANT MELANOMA STAGE IV
     Dosage: 2 MG/KG, Q3W
     Dates: start: 2014

REACTIONS (3)
  - Lichenoid keratosis [Recovered/Resolved]
  - Toxicity to various agents [Recovered/Resolved]
  - Dermatitis psoriasiform [Recovered/Resolved]
